FAERS Safety Report 7691564-3 (Version None)
Quarter: 2011Q3

REPORT INFORMATION
  Report Type: 
  Country: None (occurrence: None)
  Receive Date: 20110817
  Receipt Date: 20110817
  Transmission Date: 20111222
  Serious: Yes (Hospitalization)
  Sender: FDA-Public Use
  Company Number: None

PATIENT
  Sex: Female
  Weight: 73.2 kg

DRUGS (4)
  1. FLUOROURACIL [Suspect]
     Dosage: 5180 MG
  2. ELOXATIN [Suspect]
     Dosage: 157 MG
  3. LEUCOVORIN CALCIUM [Suspect]
     Dosage: 740 MG
  4. BEVACIZUMAB (RHUMAB VEGF) [Suspect]
     Dosage: 366 NG

REACTIONS (4)
  - DEHYDRATION [None]
  - VOMITING [None]
  - RENAL FAILURE ACUTE [None]
  - NAUSEA [None]
